FAERS Safety Report 6010157-7 (Version None)
Quarter: 2008Q4

REPORT INFORMATION
  Report Type: 
  Country: None (occurrence: None)
  Receive Date: 20081217
  Receipt Date: 20081217
  Transmission Date: 20090506
  Serious: No
  Sender: FDA-Public Use
  Company Number: None

PATIENT
  Age: 70 Year
  Sex: Female
  Weight: 51.2565 kg

DRUGS (4)
  1. PREVACID [Suspect]
     Indication: GASTRITIS
     Dosage: 30 MG 1/DAY
     Dates: start: 20030101, end: 20080101
  2. PREVACID [Suspect]
     Indication: GASTROOESOPHAGEAL REFLUX DISEASE
     Dosage: 30 MG 1/DAY
     Dates: start: 20030101, end: 20080101
  3. PREVACID [Suspect]
     Indication: OESOPHAGITIS
     Dosage: 30 MG 1/DAY
     Dates: start: 20030101, end: 20080101
  4. ACTONEL [Suspect]
     Indication: OSTEOPENIA
     Dosage: 35 MG 1/WEEK
     Dates: start: 20060101, end: 20080601

REACTIONS (1)
  - SYNCOPE [None]
